FAERS Safety Report 4750823-4 (Version None)
Quarter: 2005Q3

REPORT INFORMATION
  Report Type: 
  Country: None (occurrence: None)
  Receive Date: 20050822
  Receipt Date: 20050809
  Transmission Date: 20060218
  Serious: Yes (Hospitalization)
  Sender: FDA-Public Use
  Company Number: 2005-BP-13615EX

PATIENT
  Age: 56 Year
  Sex: Male

DRUGS (5)
  1. PREDNISONE TAB [Suspect]
     Indication: PROSTATE CANCER
     Dosage: 10 MG DAILY (NR) PO
     Route: 048
     Dates: start: 20050208
  2. MITOXANTRONE [Suspect]
     Indication: PROSTATE CANCER
     Dosage: 12 MG/M2 (22 MG) EVERY 3 WEEKS, (NR) IV
     Route: 042
     Dates: start: 20050208
  3. HYDROMORPHONE [Concomitant]
  4. DOCUSATE SODIUM [Concomitant]
  5. SENNA FRUIT (SENNA ALEXANDER FRUIT) [Concomitant]

REACTIONS (4)
  - LUNG INFECTION [None]
  - LYMPHANGIOSIS CARCINOMATOSA [None]
  - NEUTROPENIA [None]
  - PNEUMONIA [None]
